FAERS Safety Report 9119917 (Version 1)
Quarter: 2013Q1

REPORT INFORMATION
  Report Type: Spontaneous
  Country: US (occurrence: US)
  Receive Date: 20130226
  Receipt Date: 20130226
  Transmission Date: 20140127
  Serious: Yes (Hospitalization)
  Sender: FDA-Public Use
  Company Number: US-SHIRE-ALL1-2013-00966

PATIENT
  Age: 44 Year
  Sex: Male

DRUGS (6)
  1. VYVANSE [Suspect]
     Indication: ATTENTION DEFICIT/HYPERACTIVITY DISORDER
     Dosage: 30 MG, 1X/DAY:QD
     Route: 048
     Dates: start: 201209, end: 20130124
  2. VYVANSE [Suspect]
     Dosage: 20 MG, UNKNOWN
     Route: 048
     Dates: start: 201302
  3. VYVANSE [Suspect]
     Dosage: UNK, 1X/DAY:QD (HALF SOLUTION OF 20 MG CAPSULE CONTENTS IN WATER DAILY)
     Route: 048
     Dates: start: 201302
  4. REQUIP LP [Suspect]
     Indication: RESTLESS LEGS SYNDROME
     Dosage: UNK, UNKNOWN
     Route: 065
     Dates: end: 20130124
  5. ANTIBIOTICS [Suspect]
     Indication: LOCALISED INFECTION
     Dosage: UNK, UNKNOWN
     Route: 065
     Dates: end: 20130124
  6. LEXAPRO [Concomitant]
     Indication: PRODUCT USED FOR UNKNOWN INDICATION
     Dosage: UNK, UNKNOWN
     Route: 065
     Dates: end: 20130124

REACTIONS (8)
  - Psychotic disorder [Recovered/Resolved]
  - Tension [Recovered/Resolved]
  - Paranoia [Recovered/Resolved]
  - Aphasia [Recovered/Resolved]
  - Confusional state [Recovered/Resolved]
  - Drug interaction [Recovered/Resolved]
  - Localised infection [Recovered/Resolved]
  - Drug prescribing error [Not Recovered/Not Resolved]
